FAERS Safety Report 4407720-3 (Version None)
Quarter: 2004Q3

REPORT INFORMATION
  Report Type: 
  Country: None (occurrence: None)
  Receive Date: 20040726
  Receipt Date: 20040422
  Transmission Date: 20050211
  Serious: Yes (Hospitalization, Other)
  Sender: FDA-Public Use
  Company Number: JP-MERCK-0404USA02078

PATIENT
  Age: 66 Year
  Sex: Female

DRUGS (6)
  1. CANDESARTAN CILEXETIL [Concomitant]
     Indication: HYPERTENSION
     Route: 065
     Dates: start: 20020803, end: 20040416
  2. CANDESARTAN CILEXETIL [Concomitant]
     Route: 065
     Dates: start: 20001101, end: 20040416
  3. CLARITHROMYCIN [Concomitant]
     Indication: BRONCHITIS
     Route: 065
     Dates: start: 20040413, end: 20040416
  4. MEFRUSIDE [Concomitant]
     Indication: HYPERTENSION
     Route: 065
     Dates: start: 20040415, end: 20040416
  5. ZOCOR [Suspect]
     Indication: HYPERLIPIDAEMIA
     Route: 048
     Dates: start: 20021106, end: 20040416
  6. TELMISARTAN [Suspect]
     Indication: HYPERTENSION
     Route: 048
     Dates: start: 20040415, end: 20040416

REACTIONS (8)
  - ASTHMA [None]
  - BLOOD PRESSURE INCREASED [None]
  - CHEST DISCOMFORT [None]
  - CHEST PAIN [None]
  - MUSCLE CRAMP [None]
  - NASOPHARYNGITIS [None]
  - RHABDOMYOLYSIS [None]
  - TETANY [None]
